FAERS Safety Report 10152752 (Version 1)
Quarter: 2014Q2

REPORT INFORMATION
  Report Type: Spontaneous
  Country: US (occurrence: None)
  Receive Date: 20140502
  Receipt Date: 20140502
  Transmission Date: 20141212
  Serious: Yes (Life-Threatening, Hospitalization)
  Sender: FDA-Public Use
  Company Number: None

PATIENT
  Age: 84 Year
  Sex: Female

DRUGS (14)
  1. PREDNISONE [Suspect]
     Indication: ATRIAL FIBRILLATION
  2. KCL [Concomitant]
  3. PROTONIX [Concomitant]
  4. BYSTOLIC [Concomitant]
  5. SINGULAIR [Suspect]
  6. SYMTHROID [Concomitant]
  7. AVAPRO [Concomitant]
  8. NORCO [Concomitant]
  9. APRESOLINE [Concomitant]
  10. LASIX [Concomitant]
  11. ADVAIR [Concomitant]
  12. FERROUS SULFATE [Suspect]
  13. COLACE [Suspect]
  14. CALCIUM+ VITAMIN D [Concomitant]

REACTIONS (1)
  - Haemorrhage intracranial [None]
